FAERS Safety Report 13119241 (Version 1)
Quarter: 2017Q1

REPORT INFORMATION
  Report Type: Spontaneous
  Country: GB (occurrence: GB)
  Receive Date: 20170116
  Receipt Date: 20170116
  Transmission Date: 20170428
  Serious: Yes (Other)
  Sender: FDA-Public Use
  Company Number: GB-BAUSCH-BL-2017-000562

PATIENT
  Age: 69 Year
  Sex: Male
  Weight: 52.16 kg

DRUGS (1)
  1. MOVIPREP [Suspect]
     Active Substance: ASCORBIC ACID\POLYETHYLENE GLYCOL 3350\POTASSIUM CHLORIDE\SODIUM ASCORBATE\SODIUM CHLORIDE\SODIUM SULFATE
     Indication: BOWEL PREPARATION
     Dosage: 2 LIT, 1 TOTAL
     Route: 048
     Dates: start: 20161218, end: 20161218

REACTIONS (2)
  - Anal incontinence [Recovered/Resolved]
  - Therapeutic response prolonged [Recovered/Resolved]

NARRATIVE: CASE EVENT DATE: 20161218
